FAERS Safety Report 15524840 (Version 1)
Quarter: 2018Q4

REPORT INFORMATION
  Report Type: Spontaneous
  Country: JP (occurrence: JP)
  Receive Date: 20181019
  Receipt Date: 20181019
  Transmission Date: 20190205
  Serious: Yes (Other)
  Sender: FDA-Public Use
  Company Number: JP-BAUSCH-SYM-2013-03337

PATIENT
  Age: 73 Year
  Sex: Female

DRUGS (53)
  1. LUCENTIS [Suspect]
     Active Substance: RANIBIZUMAB
     Dosage: INTRAVITREAL IN
     Route: 050
     Dates: start: 20101110
  2. LUCENTIS [Suspect]
     Active Substance: RANIBIZUMAB
     Dosage: INTRAVITREAL IN
     Route: 050
     Dates: start: 20101215
  3. LUCENTIS [Suspect]
     Active Substance: RANIBIZUMAB
     Route: 031
     Dates: start: 20120208
  4. LUCENTIS [Suspect]
     Active Substance: RANIBIZUMAB
     Dosage: INTRAVITREAL IN
     Route: 050
     Dates: start: 20110112
  5. LUCENTIS [Suspect]
     Active Substance: RANIBIZUMAB
     Dosage: INTRAVITREAL IN
     Route: 050
     Dates: start: 20120209
  6. LUCENTIS [Suspect]
     Active Substance: RANIBIZUMAB
     Dosage: INTRAVITREAL IN
     Route: 050
     Dates: start: 20090410
  7. LUCENTIS [Suspect]
     Active Substance: RANIBIZUMAB
     Dosage: INTRAVITREAL IN
     Route: 050
     Dates: start: 20090821
  8. VISUDYNE [Suspect]
     Active Substance: VERTEPORFIN
     Route: 042
     Dates: start: 20090821
  9. LUCENTIS [Suspect]
     Active Substance: RANIBIZUMAB
     Indication: AGE-RELATED MACULAR DEGENERATION
     Dosage: INTRAVITREAL IN
     Route: 050
     Dates: start: 20090407
  10. LUCENTIS [Suspect]
     Active Substance: RANIBIZUMAB
     Dosage: INTRAVITREAL IN
     Route: 050
     Dates: start: 20100616
  11. LUCENTIS [Suspect]
     Active Substance: RANIBIZUMAB
     Dosage: INTRAVITREAL IN
     Route: 050
     Dates: start: 20100915
  12. LUCENTIS [Suspect]
     Active Substance: RANIBIZUMAB
     Dosage: INTRAVITREAL IN
     Route: 050
     Dates: start: 20101013
  13. LUCENTIS [Suspect]
     Active Substance: RANIBIZUMAB
     Route: 031
     Dates: start: 20110420
  14. LUCENTIS [Suspect]
     Active Substance: RANIBIZUMAB
     Route: 031
     Dates: start: 20110622
  15. LUCENTIS [Suspect]
     Active Substance: RANIBIZUMAB
     Dosage: INTRAVITREAL IN
     Route: 050
     Dates: start: 20110112
  16. LUCENTIS [Suspect]
     Active Substance: RANIBIZUMAB
     Dosage: INTRAVITREAL IN
     Route: 050
     Dates: start: 20110420
  17. LUCENTIS [Suspect]
     Active Substance: RANIBIZUMAB
     Dosage: INTRAVITREAL IN
     Route: 050
     Dates: start: 20110914
  18. LUCENTIS [Suspect]
     Active Substance: RANIBIZUMAB
     Dosage: INTRAVITREAL IN
     Route: 050
     Dates: start: 20120509
  19. LUCENTIS [Suspect]
     Active Substance: RANIBIZUMAB
     Dosage: INTRAVITREAL IN
     Route: 050
     Dates: start: 20120606
  20. LUCENTIS [Suspect]
     Active Substance: RANIBIZUMAB
     Route: 031
     Dates: start: 20100616
  21. LUCENTIS [Suspect]
     Active Substance: RANIBIZUMAB
     Route: 031
     Dates: start: 20111012
  22. LUCENTIS [Suspect]
     Active Substance: RANIBIZUMAB
     Route: 031
     Dates: start: 20110112
  23. LUCENTIS [Suspect]
     Active Substance: RANIBIZUMAB
     Indication: POLYPOIDAL CHOROIDAL VASCULOPATHY
     Dosage: INTRAVITREAL IN
     Route: 050
     Dates: start: 20090818, end: 20090818
  24. LUCENTIS [Suspect]
     Active Substance: RANIBIZUMAB
     Dosage: INTRAVITREAL IN
     Route: 050
     Dates: start: 20110209
  25. LUCENTIS [Suspect]
     Active Substance: RANIBIZUMAB
     Dosage: INTRAVITREAL IN
     Route: 050
     Dates: start: 20111214
  26. LUCENTIS [Suspect]
     Active Substance: RANIBIZUMAB
     Dosage: INTRAVITREAL IN
     Route: 050
     Dates: start: 20120411
  27. LUCENTIS [Suspect]
     Active Substance: RANIBIZUMAB
     Route: 031
     Dates: start: 20090407
  28. LUCENTIS [Suspect]
     Active Substance: RANIBIZUMAB
     Route: 031
     Dates: start: 20120111
  29. LUCENTIS [Suspect]
     Active Substance: RANIBIZUMAB
     Route: 031
     Dates: start: 20120606
  30. LUCENTIS [Suspect]
     Active Substance: RANIBIZUMAB
     Route: 031
     Dates: start: 20110112
  31. LUCENTIS [Suspect]
     Active Substance: RANIBIZUMAB
     Route: 031
     Dates: start: 20110209
  32. VISUDYNE [Suspect]
     Active Substance: VERTEPORFIN
     Indication: AGE-RELATED MACULAR DEGENERATION
     Route: 042
     Dates: start: 20090410
  33. LUCENTIS [Suspect]
     Active Substance: RANIBIZUMAB
     Route: 031
     Dates: start: 20090818
  34. LUCENTIS [Suspect]
     Active Substance: RANIBIZUMAB
     Route: 031
     Dates: start: 20100915
  35. LUCENTIS [Suspect]
     Active Substance: RANIBIZUMAB
     Route: 031
     Dates: start: 20110518
  36. LUCENTIS [Suspect]
     Active Substance: RANIBIZUMAB
     Route: 031
     Dates: start: 20120509
  37. LUCENTIS [Suspect]
     Active Substance: RANIBIZUMAB
     Route: 031
     Dates: start: 20101110
  38. LUCENTIS [Suspect]
     Active Substance: RANIBIZUMAB
     Route: 031
     Dates: start: 20101215
  39. LUCENTIS [Suspect]
     Active Substance: RANIBIZUMAB
     Dosage: INTRAVITREAL IN
     Route: 050
     Dates: start: 20100811
  40. LUCENTIS [Suspect]
     Active Substance: RANIBIZUMAB
     Dosage: INTRAVITREAL IN
     Route: 050
     Dates: start: 20110518
  41. LUCENTIS [Suspect]
     Active Substance: RANIBIZUMAB
     Dosage: INTRAVITREAL IN
     Route: 050
     Dates: start: 20110622
  42. LUCENTIS [Suspect]
     Active Substance: RANIBIZUMAB
     Dosage: INTRAVITREAL IN
     Route: 050
     Dates: start: 20111012
  43. LUCENTIS [Suspect]
     Active Substance: RANIBIZUMAB
     Route: 031
     Dates: start: 20100714
  44. LUCENTIS [Suspect]
     Active Substance: RANIBIZUMAB
     Route: 031
     Dates: start: 20101013
  45. LUCENTIS [Suspect]
     Active Substance: RANIBIZUMAB
     Route: 031
     Dates: start: 20110817
  46. LUCENTIS [Suspect]
     Active Substance: RANIBIZUMAB
     Route: 031
     Dates: start: 20111214
  47. LUCENTIS [Suspect]
     Active Substance: RANIBIZUMAB
     Route: 031
     Dates: start: 20120411
  48. LUCENTIS [Suspect]
     Active Substance: RANIBIZUMAB
     Dosage: INTRAVITREAL IN
     Route: 050
     Dates: start: 20100714
  49. LUCENTIS [Suspect]
     Active Substance: RANIBIZUMAB
     Dosage: INTRAVITREAL IN
     Route: 050
     Dates: start: 20110817
  50. LUCENTIS [Suspect]
     Active Substance: RANIBIZUMAB
     Dosage: INTRAVITREAL IN
     Route: 050
     Dates: start: 20120111
  51. LUCENTIS [Suspect]
     Active Substance: RANIBIZUMAB
     Route: 031
     Dates: start: 20100811
  52. LUCENTIS [Suspect]
     Active Substance: RANIBIZUMAB
     Route: 031
     Dates: start: 20110914
  53. GATIFLO [Concomitant]
     Active Substance: GATIFLOXACIN
     Indication: PRODUCT USED FOR UNKNOWN INDICATION
     Route: 065
     Dates: start: 201006, end: 201206

REACTIONS (5)
  - Chorioretinal atrophy [Recovering/Resolving]
  - Retinal detachment [Recovering/Resolving]
  - Condition aggravated [Recovering/Resolving]
  - Exudative retinopathy [Recovering/Resolving]
  - Visual acuity reduced [Recovering/Resolving]

NARRATIVE: CASE EVENT DATE: 20100602
